FAERS Safety Report 4682256-3 (Version None)
Quarter: 2005Q2

REPORT INFORMATION
  Report Type: 
  Country: None (occurrence: None)
  Receive Date: 20050606
  Receipt Date: 20041227
  Transmission Date: 20051028
  Serious: Yes (Disabling)
  Sender: FDA-Public Use
  Company Number: PHBS2004IT17280

PATIENT
  Age: 49 Year
  Sex: Female

DRUGS (8)
  1. AREDIA [Suspect]
     Indication: METASTASES TO BONE
     Dosage: 60 MG, QMO
     Route: 042
     Dates: start: 20010614, end: 20011123
  2. AREDIA [Suspect]
     Dosage: 90 MG, QMO
     Route: 042
     Dates: start: 20011124, end: 20020516
  3. ZOMETA [Suspect]
     Indication: METASTASES TO BONE
     Dosage: 4 MG, QMO
     Route: 042
     Dates: start: 20020517, end: 20041026
  4. RANITIDINE [Concomitant]
  5. NOLVADEX [Concomitant]
  6. ARIMIDEX [Concomitant]
  7. ENANTONE [Concomitant]
  8. CONTRAMAL [Concomitant]

REACTIONS (5)
  - ABSCESS DRAINAGE [None]
  - MANDIBULECTOMY [None]
  - OSTEOMYELITIS [None]
  - TOOTH ABSCESS [None]
  - TOOTH DISORDER [None]
